FAERS Safety Report 6557205-3 (Version None)
Quarter: 2010Q1

REPORT INFORMATION
  Report Type: 
  Country: None (occurrence: None)
  Receive Date: 20100127
  Receipt Date: 20100127
  Transmission Date: 20100710
  Serious: Yes (Other)
  Sender: FDA-Public Use
  Company Number: None

PATIENT
  Age: 43 Year
  Sex: Male
  Weight: 176.9028 kg

DRUGS (10)
  1. LEVOTHYROXINE SODIUM [Suspect]
     Indication: HYPOTHYROIDISM
     Dosage: ONE TABLET DAILY PO
     Route: 048
     Dates: start: 20100113, end: 20100126
  2. XODOL [Concomitant]
  3. ALPRAZOLAM [Concomitant]
  4. CRESTOR [Suspect]
  5. TRAMADOL [Concomitant]
  6. NAPRELAN [Suspect]
  7. MULTI-VITAMIN [Concomitant]
  8. LOVAZA [Concomitant]
  9. VITAMIN D [Concomitant]
  10. DOCUASTE SODIUM [Concomitant]

REACTIONS (3)
  - ABNORMAL SENSATION IN EYE [None]
  - DISEASE RECURRENCE [None]
  - EYE PAIN [None]
